FAERS Safety Report 19508731 (Version 1)
Quarter: 2021Q3

REPORT INFORMATION
  Report Type: Spontaneous
  Country: US (occurrence: US)
  Receive Date: 20210708
  Receipt Date: 20210708
  Transmission Date: 20211014
  Serious: Yes (Other)
  Sender: FDA-Public Use
  Company Number: US-TEVA-2021-US-1928815

PATIENT
  Age: 47 Year
  Sex: Male

DRUGS (12)
  1. DECITABINE. [Suspect]
     Active Substance: DECITABINE
     Indication: ACUTE MYELOID LEUKAEMIA
     Route: 065
  2. SORAFENIB [Suspect]
     Active Substance: SORAFENIB
     Indication: ACUTE MYELOID LEUKAEMIA
     Route: 065
  3. PONATINIB [Suspect]
     Active Substance: PONATINIB
     Indication: ACUTE MYELOID LEUKAEMIA
     Route: 065
  4. CYTARABINE. [Suspect]
     Active Substance: CYTARABINE
     Indication: ACUTE MYELOID LEUKAEMIA
     Dosage: FLAG THERAPY
     Route: 065
  5. VENETOCLAX. [Suspect]
     Active Substance: VENETOCLAX
     Indication: ACUTE MYELOID LEUKAEMIA
     Dosage: WITH DECITABINE AND PONATINIB COMBINATION THERAPY
     Route: 065
  6. IDARUBICIN [Suspect]
     Active Substance: IDARUBICIN
     Indication: ACUTE MYELOID LEUKAEMIA
     Route: 065
  7. CLADRIBINE. [Suspect]
     Active Substance: CLADRIBINE
     Indication: ACUTE MYELOID LEUKAEMIA
     Route: 065
  8. DECITABINE. [Suspect]
     Active Substance: DECITABINE
     Dosage: WITH COMBINATION THERAPY WITH VENETOCLAX AND PONATINIB
     Route: 065
  9. FLUDARABINE [Suspect]
     Active Substance: FLUDARABINE PHOSPHATE
     Indication: ACUTE MYELOID LEUKAEMIA
     Dosage: FLAG THERAPY
     Route: 065
  10. CPX?351 [Suspect]
     Active Substance: CYTARABINE\DAUNORUBICIN
     Indication: ACUTE MYELOID LEUKAEMIA
     Route: 065
  11. CYTARABINE. [Suspect]
     Active Substance: CYTARABINE
     Dosage: WITH CLADRIBINE, IDARUBICIN AND SORAFENIB COMBINATION THERAPY
     Route: 065
  12. GILTERITINIB [Suspect]
     Active Substance: GILTERITINIB
     Indication: ACUTE MYELOID LEUKAEMIA
     Dosage: SALVAGE THERAPY
     Route: 065

REACTIONS (1)
  - Drug resistance [Unknown]
